FAERS Safety Report 15672813 (Version 2)
Quarter: 2019Q2

REPORT INFORMATION
  Report Type: Report from Study
  Country: US (occurrence: US)
  Receive Date: 20181129
  Receipt Date: 20190523
  Transmission Date: 20190711
  Serious: Yes (Other)
  Sender: FDA-Public Use
  Company Number: US-TESARO-2018-TSO0902-US

PATIENT
  Sex: Female
  Weight: 99.77 kg

DRUGS (1)
  1. ZEJULA [Suspect]
     Active Substance: NIRAPARIB
     Indication: OVARIAN CANCER
     Dosage: 100 MG, 3 CAPSULES DAILY
     Route: 048
     Dates: start: 20170821

REACTIONS (4)
  - Burning sensation [Not Recovered/Not Resolved]
  - Hypoaesthesia [Not Recovered/Not Resolved]
  - Clostridium difficile infection [Unknown]
  - Initial insomnia [Not Recovered/Not Resolved]
